FAERS Safety Report 17997099 (Version 1)
Quarter: 2020Q3

REPORT INFORMATION
  Report Type: Spontaneous
  Country: DK (occurrence: DK)
  Receive Date: 20200708
  Receipt Date: 20200708
  Transmission Date: 20201103
  Serious: Yes (Hospitalization, Other)
  Sender: FDA-Public Use
  Company Number: DK-MYLANLABS-2020M1061790

PATIENT
  Age: 43 Year
  Sex: Male

DRUGS (2)
  1. DICLOFENAC [Suspect]
     Active Substance: DICLOFENAC
     Indication: NEPHROLITHIASIS
     Dosage: UNK
     Route: 048
     Dates: start: 202005, end: 20200507
  2. KETOPROFEN. [Suspect]
     Active Substance: KETOPROFEN
     Indication: NEPHROLITHIASIS
     Dosage: UNK
     Route: 048
     Dates: start: 202005, end: 20200507

REACTIONS (2)
  - Perforated ulcer [Recovered/Resolved]
  - Off label use [Unknown]

NARRATIVE: CASE EVENT DATE: 202005
